FAERS Safety Report 5049323-6 (Version None)
Quarter: 2006Q3

REPORT INFORMATION
  Report Type: 
  Country: None (occurrence: None)
  Receive Date: 20060712
  Receipt Date: 20060621
  Transmission Date: 20061208
  Serious: Yes (Life-Threatening)
  Sender: FDA-Public Use
  Company Number: JP-MERCK-0606USA05689

PATIENT
  Age: 79 Year
  Sex: Female
  Weight: 38 kg

DRUGS (11)
  1. COZAAR [Suspect]
     Indication: HYPERTENSION
     Route: 048
  2. HEPARIN SODIUM [Suspect]
     Route: 051
     Dates: start: 20050816
  3. NAFAMOSTAT MESYLATE [Concomitant]
     Route: 051
  4. DALTEPARIN SODIUM [Concomitant]
     Route: 051
  5. ASPIRIN [Concomitant]
     Indication: CEREBROVASCULAR DISORDER
     Route: 048
  6. THEOLONG [Concomitant]
     Indication: ASTHMA
     Route: 048
  7. ANPLAG [Concomitant]
     Indication: ARTERIOSCLEROSIS
     Route: 048
  8. NORVASC [Concomitant]
     Indication: HYPERTENSION
     Route: 048
  9. OPALMON [Concomitant]
     Indication: ARTERIOSCLEROSIS OBLITERANS
     Route: 048
  10. MAGNESIUM OXIDE [Concomitant]
     Route: 048
  11. CALCIUM POLYCARBOPHIL [Concomitant]
     Indication: CONSTIPATION
     Route: 048

REACTIONS (1)
  - ANAPHYLACTIC SHOCK [None]
